FAERS Safety Report 18602637 (Version 1)
Quarter: 2020Q4

REPORT INFORMATION
  Report Type: Report from Study
  Country: US (occurrence: US)
  Receive Date: 20201211
  Receipt Date: 20201211
  Transmission Date: 20210114
  Serious: Yes (Life-Threatening, Hospitalization)
  Sender: FDA-Public Use
  Company Number: US-DECIPHERA PHARMACEUTICALS LLC-2018-US-000066

PATIENT
  Age: 62 Year
  Sex: Male
  Weight: 113.4 kg

DRUGS (14)
  1. DCC-2618 [Suspect]
     Active Substance: RIPRETINIB
     Indication: LEYDIG CELL TUMOUR OF THE TESTIS
     Dosage: 150 MILLIGRAM, QD
     Route: 048
     Dates: start: 20180201, end: 20180411
  2. MULTIVITAMIN [Concomitant]
     Active Substance: VITAMINS
     Dosage: 500 MG, UNK
     Route: 048
  3. CALCIUM [Concomitant]
     Active Substance: CALCIUM
     Indication: SUPPLEMENTATION THERAPY
     Dosage: 600 MG, UNK
     Route: 048
  4. SYNALAR [Concomitant]
     Active Substance: FLUOCINOLONE ACETONIDE
     Indication: PRURITUS
     Dosage: 0.01 %, UNK
     Route: 061
     Dates: start: 20180426
  5. IBUPROFEN. [Concomitant]
     Active Substance: IBUPROFEN
     Indication: CHEST PAIN
     Dosage: UNK
     Route: 048
     Dates: start: 20180215
  6. SENNA [Concomitant]
     Active Substance: SENNA LEAF\SENNOSIDES\SENNOSIDES A AND B
     Indication: CONSTIPATION
     Dosage: 8.6 MG, UNK
     Route: 048
     Dates: start: 20180301
  7. DCC-2618 [Suspect]
     Active Substance: RIPRETINIB
     Dosage: 150 MILLIGRAM, QD
     Route: 048
     Dates: start: 20180413, end: 20180524
  8. ASPIRIN. [Concomitant]
     Active Substance: ASPIRIN
     Indication: HYPERTENSION
     Dosage: 81 G, UNK
     Route: 048
  9. POTASSIUM PHOSPHATE MONOBASIC W/SODIUM PHOSPHATE [Concomitant]
     Indication: HYPOPHOSPHATAEMIA
     Dosage: 250 MG, UNK
     Route: 048
     Dates: start: 20180329
  10. VITAMIN D [Concomitant]
     Active Substance: VITAMIN D NOS
     Indication: SUPPLEMENTATION THERAPY
     Dosage: 1000 MG, UNK
     Route: 048
  11. SYNTHROID [Concomitant]
     Active Substance: LEVOTHYROXINE SODIUM
     Indication: HYPOTHYROIDISM
     Dosage: 200 MCG, UNK
     Route: 048
  12. COLACE [Concomitant]
     Active Substance: DOCUSATE SODIUM
     Indication: CONSTIPATION
     Dosage: 100 MG, UNK
     Route: 048
     Dates: start: 20180301
  13. VITAMIN C [Concomitant]
     Active Substance: ASCORBIC ACID
     Indication: SUPPLEMENTATION THERAPY
     Dosage: 500 MG, UNK
     Route: 048
  14. LYSINE [Concomitant]
     Active Substance: LYSINE
     Indication: SUPPLEMENTATION THERAPY
     Dosage: 500 MG, UNK
     Route: 048

REACTIONS (3)
  - Sepsis [Not Recovered/Not Resolved]
  - Multiple organ dysfunction syndrome [Recovered/Resolved]
  - Blood bilirubin increased [Not Recovered/Not Resolved]

NARRATIVE: CASE EVENT DATE: 20180525
